FAERS Safety Report 10083963 (Version 1)
Quarter: 2014Q2

REPORT INFORMATION
  Report Type: Spontaneous
  Country: US (occurrence: US)
  Receive Date: 20140417
  Receipt Date: 20140417
  Transmission Date: 20141212
  Serious: No
  Sender: FDA-Public Use
  Company Number: US-TEVA-475873USA

PATIENT
  Age: 6 Year
  Sex: Male

DRUGS (1)
  1. QVAR [Suspect]
     Indication: ASTHMA

REACTIONS (2)
  - Cough [Recovered/Resolved]
  - Asthma [Recovered/Resolved]
